FAERS Safety Report 10072649 (Version 1)
Quarter: 2014Q2

REPORT INFORMATION
  Report Type: Other
  Country: US (occurrence: US)
  Receive Date: 20140411
  Receipt Date: 20140411
  Transmission Date: 20141212
  Serious: Yes (Other)
  Sender: FDA-Public Use
  Company Number: US-FRI-1000066246

PATIENT
  Age: 32 Year
  Sex: Female

DRUGS (6)
  1. ARMOUR THYROID [Suspect]
  2. PROCARDIA [Concomitant]
  3. LOVENOX [Concomitant]
  4. ASPIRIN [Concomitant]
  5. PROGESTERONE [Concomitant]
  6. CLOMID [Concomitant]

REACTIONS (4)
  - Oligohydramnios [Recovered/Resolved]
  - Foetal growth restriction [Recovered/Resolved]
  - Exposure during pregnancy [Recovered/Resolved]
  - Breech presentation [Recovered/Resolved]
